FAERS Safety Report 8532462-2 (Version None)
Quarter: 2012Q3

REPORT INFORMATION
  Report Type: 
  Country: None (occurrence: None)
  Receive Date: 20120716
  Receipt Date: 20120716
  Transmission Date: 20120928
  Serious: No
  Sender: FDA-Public Use
  Company Number: None

PATIENT

DRUGS (1)
  1. AVASTIN [Suspect]

REACTIONS (9)
  - VISUAL FIELD DEFECT [None]
  - NAUSEA [None]
  - EYE HAEMORRHAGE [None]
  - EYE SWELLING [None]
  - EYE INFLAMMATION [None]
  - ENDOPHTHALMITIS [None]
  - EYE INFECTION BACTERIAL [None]
  - HEADACHE [None]
  - OFF LABEL USE [None]
